FAERS Safety Report 9351139 (Version 1)
Quarter: 2013Q2

REPORT INFORMATION
  Report Type: Spontaneous
  Country: RU (occurrence: RU)
  Receive Date: 20130617
  Receipt Date: 20130617
  Transmission Date: 20140414
  Serious: Yes (Life-Threatening)
  Sender: FDA-Public Use
  Company Number: RU-BAYER-2013-073559

PATIENT
  Age: 79 Year
  Sex: Female

DRUGS (2)
  1. ULTRAVIST [Suspect]
  2. TORSEMIDE [Concomitant]

REACTIONS (3)
  - Tongue oedema [Recovered/Resolved]
  - Erythema [Recovered/Resolved]
  - Depression [Recovered/Resolved]
